FAERS Safety Report 5348422-9 (Version None)
Quarter: 2007Q2

REPORT INFORMATION
  Report Type: 
  Country: None (occurrence: None)
  Receive Date: 20070606
  Receipt Date: 20070526
  Transmission Date: 20071010
  Serious: Yes (Other)
  Sender: FDA-Public Use
  Company Number: US-PFIZER INC-2007022189

PATIENT
  Sex: Female
  Weight: 81.6 kg

DRUGS (2)
  1. ZYVOX [Suspect]
     Indication: WOUND INFECTION
     Route: 042
  2. ALL OTHER THERAPEUTIC PRODUCTS [Concomitant]

REACTIONS (3)
  - ENTEROCOCCAL INFECTION [None]
  - PROTEUS INFECTION [None]
  - TREMOR [None]
